FAERS Safety Report 6568316-0 (Version None)
Quarter: 2010Q1

REPORT INFORMATION
  Report Type: 
  Country: None (occurrence: None)
  Receive Date: 20100203
  Receipt Date: 20100126
  Transmission Date: 20100710
  Serious: Yes (Hospitalization, Other)
  Sender: FDA-Public Use
  Company Number: CA-ELI_LILLY_AND_COMPANY-CA201001003354

PATIENT
  Age: 82 Year
  Sex: Female

DRUGS (19)
  1. FORTEO [Suspect]
     Indication: OSTEOPOROSIS
     Dosage: 20 UG, DAILY (1/D)
     Route: 058
     Dates: start: 20080916, end: 20091229
  2. CALCIUM [Concomitant]
  3. CENTRUM /00554501/ [Concomitant]
  4. VITAMIN C [Concomitant]
  5. VITAMIN D [Concomitant]
  6. PLAVIX [Concomitant]
  7. CELEBREX [Concomitant]
  8. GEN-SIMVASTATIN [Concomitant]
  9. ASPIRIN [Concomitant]
  10. BISOPROLOL SANDOZ [Concomitant]
  11. SYNTHROID [Concomitant]
  12. LOSEC [Concomitant]
  13. CLONAZEPAM [Concomitant]
     Dosage: UNK, AS NEEDED
  14. NITROGLYCERIN [Concomitant]
     Dosage: UNK, AS NEEDED
  15. ALTACE [Concomitant]
  16. LASIX [Concomitant]
  17. K-DUR [Concomitant]
  18. WARFARIN [Concomitant]
  19. DOMPERIDONE [Concomitant]

REACTIONS (3)
  - CARDIAC FAILURE CONGESTIVE [None]
  - CEREBROVASCULAR ACCIDENT [None]
  - PNEUMONIA [None]
